FAERS Safety Report 5212711-9 (Version None)
Quarter: 2006Q4

REPORT INFORMATION
  Report Type: 
  Country: None (occurrence: None)
  Receive Date: 20061115
  Receipt Date: 20060829
  Transmission Date: 20070319
  Serious: Yes (Other)
  Sender: FDA-Public Use
  Company Number: 200615439BWH

PATIENT
  Age: 42 Year
  Sex: Male

DRUGS (5)
  1. NEXAVAR [Suspect]
     Indication: SARCOMA
     Dosage: 400 MG, BID, ORAL
     Route: 048
     Dates: start: 20060710, end: 20060802
  2. DECADRON [Concomitant]
  3. PROTONIX [Concomitant]
  4. KEFLEX [Concomitant]
  5. HYDROCHLOROTHIAZIDE [Concomitant]

REACTIONS (1)
  - THROMBOCYTOPENIA [None]
